FAERS Safety Report 5338044-8 (Version None)
Quarter: 2007Q2

REPORT INFORMATION
  Report Type: 
  Country: None (occurrence: None)
  Receive Date: 20070327
  Receipt Date: 20070131
  Transmission Date: 20071010
  Serious: Yes (Hospitalization, Other)
  Sender: FDA-Public Use
  Company Number: 234644

PATIENT
  Age: 46 Year
  Sex: Female

DRUGS (7)
  1. AVASTIN [Suspect]
     Indication: BREAST CANCER METASTATIC
     Dosage: 10MG/KG, DAYS 1 + 15; INTRAVENOUS
     Route: 042
     Dates: start: 20061030, end: 20061211
  2. ABRAXANE [Concomitant]
  3. ZOMETA [Concomitant]
  4. PRILOSEC [Concomitant]
  5. OXYCONTIN [Concomitant]
  6. POTASSIUM CHLORIDE [Concomitant]
  7. LACTULOSE [Concomitant]

REACTIONS (1)
  - APPENDICITIS PERFORATED [None]
